FAERS Safety Report 6426293-7 (Version None)
Quarter: 2009Q4

REPORT INFORMATION
  Report Type: 
  Country: None (occurrence: None)
  Receive Date: 20091104
  Receipt Date: 20091023
  Transmission Date: 20100525
  Serious: Yes (Hospitalization)
  Sender: FDA-Public Use
  Company Number: US-CELGENEUS-163-21880-09100687

PATIENT
  Sex: Female

DRUGS (1)
  1. REVLIMID [Suspect]
     Indication: LYMPHOPROLIFERATIVE DISORDER
     Route: 048
     Dates: start: 20090701

REACTIONS (3)
  - BLOOD CALCIUM INCREASED [None]
  - FATIGUE [None]
  - LETHARGY [None]
